FAERS Safety Report 25881469 (Version 1)
Quarter: 2025Q4

REPORT INFORMATION
  Report Type: Spontaneous
  Country: US (occurrence: US)
  Receive Date: 20251005
  Receipt Date: 20251005
  Transmission Date: 20260117
  Serious: No
  Sender: SANOFI AVENTIS
  Company Number: US-SANOFI-02673078

PATIENT
  Sex: Male

DRUGS (2)
  1. KEVZARA [Suspect]
     Active Substance: SARILUMAB
     Indication: Still^s disease
     Dosage: UNKNOWN
  2. KEVZARA [Suspect]
     Active Substance: SARILUMAB
     Dosage: UNKNOWN

REACTIONS (1)
  - Off label use [Unknown]
